FAERS Safety Report 7834276-5 (Version None)
Quarter: 2011Q4

REPORT INFORMATION
  Report Type: 
  Country: None (occurrence: None)
  Receive Date: 20111024
  Receipt Date: 20111020
  Transmission Date: 20120403
  Serious: Yes (Other)
  Sender: FDA-Public Use
  Company Number: JP-PFIZER INC-2011247261

PATIENT
  Age: 74 Year
  Sex: Female

DRUGS (9)
  1. RABEPRAZOLE SODIUM [Concomitant]
     Dosage: UNK
     Route: 048
  2. LYRICA [Suspect]
     Dosage: 150 MG, 2X/DAY
     Route: 048
     Dates: start: 20110831
  3. PROGRAF [Concomitant]
     Dosage: UNK
     Route: 048
  4. PROMAC [Concomitant]
     Dosage: UNK
     Route: 048
  5. OMEPRAZOLE [Concomitant]
     Dosage: UNK
     Route: 042
  6. LYRICA [Suspect]
     Dosage: 75 MG IN THE MORNING AND 150 MG IN THE EVENING.
     Route: 048
     Dates: start: 20110829, end: 20110830
  7. ALLOID [Concomitant]
     Dosage: UNK
     Route: 041
  8. LYRICA [Suspect]
     Indication: NEURALGIA
     Dosage: 75 MG, 2X/DAY
     Route: 048
     Dates: start: 20110826, end: 20110828
  9. CEFAZOLIN [Concomitant]
     Dosage: UNK
     Route: 042
     Dates: start: 20110828

REACTIONS (1)
  - LOSS OF CONSCIOUSNESS [None]
